FAERS Safety Report 6618999-1 (Version None)
Quarter: 2010Q1

REPORT INFORMATION
  Report Type: 
  Country: None (occurrence: None)
  Receive Date: 20100308
  Receipt Date: 20100303
  Transmission Date: 20100710
  Serious: Yes (Death)
  Sender: FDA-Public Use
  Company Number: PHEH2010US02718

PATIENT
  Sex: Male
  Weight: 85.55 kg

DRUGS (1)
  1. ZOMETA [Suspect]
     Indication: METASTASES TO BONE
     Dosage: 4 MG
     Route: 042
     Dates: start: 20091203

REACTIONS (1)
  - MALIGNANT NEOPLASM PROGRESSION [None]
